FAERS Safety Report 8423350-0 (Version None)
Quarter: 2012Q2

REPORT INFORMATION
  Report Type: 
  Country: None (occurrence: None)
  Receive Date: 20120608
  Receipt Date: 20120601
  Transmission Date: 20120825
  Serious: Yes (Hospitalization, Disabling, Other)
  Sender: FDA-Public Use
  Company Number: DE-ACTELION-A-CH2012-66631

PATIENT
  Sex: Female
  Weight: 62 kg

DRUGS (7)
  1. HYDROCORTISONE [Concomitant]
  2. FUROSEMIDE [Concomitant]
  3. MOTILIUM [Concomitant]
  4. DIAMOX [Concomitant]
  5. TRACLEER [Suspect]
     Indication: PULMONARY ARTERIAL HYPERTENSION
     Dosage: 62.5 MG, BID
     Route: 048
  6. KEPPRA [Concomitant]
  7. LEVOTHYROXINE SODIUM [Concomitant]

REACTIONS (3)
  - FEMUR FRACTURE [None]
  - OEDEMA PERIPHERAL [None]
  - SURGERY [None]
